FAERS Safety Report 18972071 (Version 3)
Quarter: 2021Q2

REPORT INFORMATION
  Report Type: Spontaneous
  Country: JP (occurrence: JP)
  Receive Date: 20210305
  Receipt Date: 20210401
  Transmission Date: 20210717
  Serious: Yes (Death, Other)
  Sender: FDA-Public Use
  Company Number: JP-PFIZER INC-2021179591

PATIENT
  Age: 54 Year
  Sex: Female

DRUGS (5)
  1. CYCLOPHOSPHAMIDE. [Suspect]
     Active Substance: CYCLOPHOSPHAMIDE
     Indication: BREAST CANCER
     Dosage: 500 MG/M2, CYCLIC (3 CYCLES, ON DAY 1 EVERY 3 WEEKS, INFUSION)
     Route: 041
     Dates: start: 200804
  2. DOCETAXEL. [Suspect]
     Active Substance: DOCETAXEL
     Indication: BREAST CANCER
     Dosage: 75 MG/M2, CYCLIC (4 CYCLES, EVERY 3 WEEKS ON DAY 1, 4CYCLICAL)
     Route: 041
     Dates: start: 200804
  3. EPIRUBICIN HCL [Suspect]
     Active Substance: EPIRUBICIN HYDROCHLORIDE
     Indication: BREAST CANCER
     Dosage: 100 MG/M2, CYCLIC (3 CYCLES, ON DAY 1 EVERY 3 WEEKS, INFUSION)
     Route: 041
     Dates: start: 200804
  4. ANASTROZOLE. [Concomitant]
     Active Substance: ANASTROZOLE
     Indication: BREAST CANCER
     Dosage: 1 MG, 1X/DAY
     Route: 048
     Dates: start: 200812, end: 201506
  5. FLUOROURACIL. [Suspect]
     Active Substance: FLUOROURACIL
     Indication: BREAST CANCER
     Dosage: 500 MG/M2, CYCLIC (3 CYCLES, ON DAY 1 EVERY 3 WEEKS, INFUSION)
     Route: 041
     Dates: start: 200804

REACTIONS (2)
  - Second primary malignancy [Recovering/Resolving]
  - Chronic myeloid leukaemia [Recovering/Resolving]

NARRATIVE: CASE EVENT DATE: 201106
